FAERS Safety Report 6656352-5 (Version None)
Quarter: 2010Q1

REPORT INFORMATION
  Report Type: 
  Country: None (occurrence: None)
  Receive Date: 20100329
  Receipt Date: 20100322
  Transmission Date: 20100710
  Serious: Yes (Hospitalization)
  Sender: FDA-Public Use
  Company Number: US-BRISTOL-MYERS SQUIBB COMPANY-15029036

PATIENT
  Age: 71 Year
  Sex: Female
  Weight: 66 kg

DRUGS (14)
  1. WARFARIN SODIUM [Suspect]
  2. CLOPIDOGREL BISULFATE [Suspect]
  3. ENBREL [Suspect]
     Indication: RHEUMATOID ARTHRITIS
     Route: 058
     Dates: start: 20080428
  4. ACETYLSALICYLIC ACID [Suspect]
  5. METHOTREXATE [Concomitant]
     Dates: start: 20080301
  6. LEVOTHYROXINE SODIUM [Concomitant]
  7. LOVASTATIN [Concomitant]
  8. PREDNISONE TAB [Concomitant]
  9. ERGOCALCIFEROL [Concomitant]
  10. FOLIC ACID [Concomitant]
  11. LISINOPRIL [Concomitant]
  12. CARVEDILOL [Concomitant]
  13. CALCIUM [Concomitant]
  14. ALENDRONATE SODIUM [Concomitant]

REACTIONS (3)
  - HAEMATOMA [None]
  - INTERNATIONAL NORMALISED RATIO INCREASED [None]
  - MYOCARDIAL INFARCTION [None]
